FAERS Safety Report 7280675-2 (Version None)
Quarter: 2011Q1

REPORT INFORMATION
  Report Type: 
  Country: None (occurrence: None)
  Receive Date: 20110208
  Receipt Date: 20110201
  Transmission Date: 20110831
  Serious: Yes (Hospitalization, Other)
  Sender: FDA-Public Use
  Company Number: A0907431A

PATIENT
  Age: 26 Year
  Sex: Female

DRUGS (4)
  1. HYDROCODONE BITARTRATE AND IBUPROFEN [Concomitant]
  2. VOTRIENT [Suspect]
     Indication: RENAL CANCER
     Dosage: 800MG PER DAY
     Route: 048
     Dates: start: 20110101, end: 20110101
  3. RECLIPSEN [Concomitant]
  4. BACLOFEN [Concomitant]

REACTIONS (5)
  - HEADACHE [None]
  - VOMITING [None]
  - TUBEROUS SCLEROSIS [None]
  - CONVULSION [None]
  - NAUSEA [None]
